FAERS Safety Report 13938183 (Version 1)
Quarter: 2017Q3

REPORT INFORMATION
  Report Type: Spontaneous
  Country: GB (occurrence: GB)
  Receive Date: 20170905
  Receipt Date: 20170905
  Transmission Date: 20171127
  Serious: Yes (Other)
  Sender: FDA-Public Use
  Company Number: GB-IMPAX LABORATORIES, INC-2017-IPXL-02553

PATIENT
  Age: 20 Year
  Sex: Female

DRUGS (5)
  1. RIFAMPICIN [Concomitant]
     Active Substance: RIFAMPIN
     Indication: PRURITUS
     Dosage: 150 MG, BID
     Route: 065
  2. URSODIOL. [Suspect]
     Active Substance: URSODIOL
     Indication: CHOLESTASIS OF PREGNANCY
     Dosage: UNK
     Route: 065
  3. URSODIOL. [Suspect]
     Active Substance: URSODIOL
     Indication: PRODUCT USE IN UNAPPROVED INDICATION
  4. VITAMIN K [Concomitant]
     Active Substance: PHYTONADIONE
     Indication: PRODUCT USED FOR UNKNOWN INDICATION
     Dosage: UNK
     Route: 065
  5. RIFAMPICIN [Concomitant]
     Active Substance: RIFAMPIN
     Indication: TOTAL BILE ACIDS INCREASED

REACTIONS (3)
  - Drug ineffective for unapproved indication [Unknown]
  - Cholestasis of pregnancy [Recovering/Resolving]
  - Maternal exposure during pregnancy [Unknown]
